FAERS Safety Report 7097853-8 (Version None)
Quarter: 2010Q4

REPORT INFORMATION
  Report Type: 
  Country: None (occurrence: None)
  Receive Date: 20101112
  Receipt Date: 20101019
  Transmission Date: 20110411
  Serious: Yes (Hospitalization)
  Sender: FDA-Public Use
  Company Number: US-BAYER-201031322NA

PATIENT
  Age: 41 Year
  Sex: Female
  Weight: 77 kg

DRUGS (32)
  1. YAZ [Suspect]
     Indication: PRODUCT USED FOR UNKNOWN INDICATION
  2. YASMIN [Suspect]
     Indication: PREMENSTRUAL SYNDROME
     Dates: start: 20000101, end: 20100101
  3. OCELLA [Suspect]
     Indication: PREMENSTRUAL SYNDROME
     Dates: start: 20000101, end: 20100101
  4. ASTHMAN-MAXAIR [Concomitant]
     Indication: ASTHMA
     Route: 055
  5. ADVIL [Concomitant]
     Indication: MUSCLE SPASMS
     Dosage: OTC (OVER THE COUNTER)
  6. TRICOR [Concomitant]
     Indication: BLOOD TRIGLYCERIDES ABNORMAL
     Dosage: TOTAL DAILY DOSE: 48 MG
     Route: 048
  7. ACIDOPHILUS [Concomitant]
  8. SINGULAIR [Concomitant]
     Indication: MULTIPLE ALLERGIES
  9. WELLBUTRIN XL [Concomitant]
     Indication: DEPRESSION
     Dosage: ER 300 MG
     Route: 048
  10. FISH OIL [Concomitant]
     Dosage: TOTAL DAILY DOSE: 3000 MG
     Route: 048
  11. ACIPHEX [Concomitant]
     Dosage: TOTAL DAILY DOSE: 20 MG
     Route: 048
  12. CALCIUM CARBONATE [Concomitant]
     Dosage: 1200 MG + D 500
     Route: 048
  13. FLOVENT HFA [Concomitant]
     Dosage: 110 MCG
     Route: 055
  14. KLONOPIN [Concomitant]
     Dosage: 1 BID PRN
     Route: 048
  15. LIDODERM [Concomitant]
     Dosage: 5%
     Route: 062
  16. MAXAIR [Concomitant]
     Dosage: Q4-6 H
     Route: 055
  17. ALLEGRA D 24 HOUR [Concomitant]
     Indication: MULTIPLE ALLERGIES
  18. PROZAC [Concomitant]
     Indication: PANIC ATTACK
  19. FLONASE [Concomitant]
     Indication: SEASONAL ALLERGY
     Route: 045
  20. SKELAXIN [Concomitant]
     Indication: BACK PAIN
  21. IBUPROFEN [Concomitant]
     Indication: BACK PAIN
  22. MORPHINE [Concomitant]
  23. HYDRATION NOS [Concomitant]
     Route: 042
  24. CIPRO [Concomitant]
     Dosage: 750 MG
  25. TORADOL [Concomitant]
     Route: 030
  26. TORADOL [Concomitant]
     Route: 042
  27. PEPCID [Concomitant]
     Route: 042
  28. DEMEROL [Concomitant]
     Route: 042
  29. FENTANYL [Concomitant]
  30. REGLAN [Concomitant]
     Route: 042
  31. ZOFRAN [Concomitant]
  32. DECADRON [Concomitant]
     Route: 042

REACTIONS (10)
  - ABDOMINAL PAIN [None]
  - ABDOMINAL PAIN UPPER [None]
  - CHOLECYSTITIS ACUTE [None]
  - CHOLECYSTITIS CHRONIC [None]
  - CHOLELITHIASIS [None]
  - DECREASED APPETITE [None]
  - DIARRHOEA [None]
  - DIZZINESS [None]
  - PYREXIA [None]
  - VOMITING [None]
